FAERS Safety Report 7134319-0 (Version None)
Quarter: 2010Q4

REPORT INFORMATION
  Report Type: 
  Country: None (occurrence: None)
  Receive Date: 20101203
  Receipt Date: 20101125
  Transmission Date: 20110411
  Serious: Yes (Hospitalization)
  Sender: FDA-Public Use
  Company Number: CH-PFIZER INC-2010162565

PATIENT
  Age: 81 Year
  Sex: Male

DRUGS (6)
  1. PANTOZOL [Suspect]
     Dosage: 20 MG, 1X/DAY
     Route: 048
  2. PREDNISONE [Suspect]
     Dosage: 20 MG; 4 DOSES IN 1 WEEK
     Route: 048
  3. SINTROM [Suspect]
     Dosage: AS NEEDED
     Route: 048
     Dates: end: 20100818
  4. SORTIS [Concomitant]
  5. PROSCAR [Concomitant]
  6. DIOVAN HCT [Concomitant]

REACTIONS (2)
  - MELAENA [None]
  - SALMONELLOSIS [None]
